FAERS Safety Report 7416048-9 (Version None)
Quarter: 2011Q2

REPORT INFORMATION
  Report Type: 
  Country: None (occurrence: None)
  Receive Date: 20110414
  Receipt Date: 20110408
  Transmission Date: 20111010
  Serious: Yes (Other)
  Sender: FDA-Public Use
  Company Number: BR-US-EMD SERONO, INC.-7053466

PATIENT
  Sex: Female

DRUGS (3)
  1. REBIF [Suspect]
     Indication: RELAPSING-REMITTING MULTIPLE SCLEROSIS
     Dates: start: 20101001
  2. ADVIL LIQUI-GELS [Concomitant]
  3. VALSARTAN [Concomitant]

REACTIONS (2)
  - HYPERTENSION [None]
  - INJECTION SITE ERYTHEMA [None]
